FAERS Safety Report 10760707 (Version 1)
Quarter: 2015Q1

REPORT INFORMATION
  Report Type: Spontaneous
  Country: US (occurrence: None)
  Receive Date: 20150202
  Receipt Date: 20150202
  Transmission Date: 20150721
  Serious: Yes (Hospitalization)
  Sender: FDA-Public Use
  Company Number: 2015010187

PATIENT
  Age: 71 Year
  Sex: Male

DRUGS (8)
  1. RIVOTRIL [Concomitant]
     Active Substance: CLONAZEPAM
  2. CARIOC [Concomitant]
  3. UNAT 10 MG (TORASEMIDE) [Suspect]
     Active Substance: TORSEMIDE
     Indication: DIURETIC THERAPY
     Route: 048
  4. UNAT 10 MG (TORASDEMIDE [Concomitant]
     Route: 048
  5. ZUVAMOR (ROSUVASTATIN) [Concomitant]
  6. PLENISH-K (POTASSIUM CHLORIDE) [Concomitant]
  7. ARYCOR (AMIODARONE HYDROCHLORIDE) [Concomitant]
  8. PURESIS (FUROSEMIDE) [Concomitant]

REACTIONS (2)
  - Hypoxia [None]
  - Myocardial infarction [None]

NARRATIVE: CASE EVENT DATE: 20150120
